FAERS Safety Report 11753439 (Version 1)
Quarter: 2015Q4

REPORT INFORMATION
  Report Type: Spontaneous
  Country: US (occurrence: None)
  Receive Date: 20151118
  Receipt Date: 20151118
  Transmission Date: 20160304
  Serious: Yes (Other)
  Sender: FDA-Public Use
  Company Number: None

PATIENT
  Age: 67 Year
  Sex: Female

DRUGS (2)
  1. GABAPENTIN 300 MG ASCEND [Suspect]
     Active Substance: GABAPENTIN
     Dosage: 1 TO 2 CAPSULES
     Route: 048
     Dates: start: 20151113, end: 20151116
  2. ACETAMINOPHEN WITH CODEINE #3 [Concomitant]

REACTIONS (4)
  - Presyncope [None]
  - Asthenia [None]
  - Fall [None]
  - Dyskinesia [None]

NARRATIVE: CASE EVENT DATE: 20151114
